FAERS Safety Report 15043688 (Version 1)
Quarter: 2018Q2

REPORT INFORMATION
  Report Type: Spontaneous
  Country: US (occurrence: US)
  Receive Date: 20180531
  Receipt Date: 20180531
  Transmission Date: 20180711
  Serious: Yes (Life-Threatening, Hospitalization, Disabling, Other)
  Sender: FDA-Public Use
  Company Number: None

PATIENT
  Age: 22 Year
  Sex: Female
  Weight: 63.5 kg

DRUGS (3)
  1. DEPO-PROVERA [Concomitant]
     Active Substance: MEDROXYPROGESTERONE ACETATE
  2. ASPIRIN. [Concomitant]
     Active Substance: ASPIRIN
  3. NEXPLANON [Suspect]
     Active Substance: ETONOGESTREL
     Dates: start: 20160229, end: 20170731

REACTIONS (5)
  - Device expulsion [None]
  - Uterine perforation [None]
  - Uterine leiomyoma [None]
  - Uterine polyp [None]
  - Vaginal haemorrhage [None]

NARRATIVE: CASE EVENT DATE: 20171121
